FAERS Safety Report 8610253-1 (Version None)
Quarter: 2012Q3

REPORT INFORMATION
  Report Type: 
  Country: None (occurrence: None)
  Receive Date: 20120810
  Receipt Date: 20120810
  Transmission Date: 20120928
  Serious: Yes (Hospitalization)
  Sender: FDA-Public Use
  Company Number: None

PATIENT
  Sex: Female
  Weight: 99.5 kg

DRUGS (2)
  1. CISPLATIN [Suspect]
     Dosage: 100 MG
  2. PACLITAXEL [Suspect]
     Dosage: 282 MG

REACTIONS (4)
  - VOMITING [None]
  - NAUSEA [None]
  - RENAL FAILURE ACUTE [None]
  - CONSTIPATION [None]
